FAERS Safety Report 10042659 (Version 1)
Quarter: 2014Q1

REPORT INFORMATION
  Report Type: Spontaneous
  Country: US (occurrence: None)
  Receive Date: 20140325
  Receipt Date: 20140325
  Transmission Date: 20141002
  Serious: Yes (Other)
  Sender: FDA-Public Use
  Company Number: 2014AP001983

PATIENT
  Age: 66 Year
  Sex: Male
  Weight: 101.4 kg

DRUGS (2)
  1. RAMIPRIL [Suspect]
     Indication: PROTEINURIA
     Route: 048
     Dates: start: 20100519
  2. SIROLIMUS [Suspect]
     Indication: PROPHYLAXIS AGAINST TRANSPLANT REJECTION
     Route: 048
     Dates: start: 20100611, end: 201008

REACTIONS (1)
  - Kidney transplant rejection [None]
